FAERS Safety Report 6600125-6 (Version None)
Quarter: 2010Q1

REPORT INFORMATION
  Report Type: 
  Country: None (occurrence: None)
  Receive Date: 20100224
  Receipt Date: 20100222
  Transmission Date: 20100710
  Serious: Yes (Other)
  Sender: FDA-Public Use
  Company Number: GXKR2010DE02117

PATIENT
  Sex: Female

DRUGS (1)
  1. OMEP (NGX) [Suspect]
     Dosage: 20 MG, UNK
     Route: 048

REACTIONS (3)
  - CONFUSIONAL STATE [None]
  - DEMENTIA ALZHEIMER'S TYPE [None]
  - DISORIENTATION [None]
